FAERS Safety Report 5582727-1 (Version None)
Quarter: 2008Q1

REPORT INFORMATION
  Report Type: 
  Country: None (occurrence: None)
  Receive Date: 20080107
  Receipt Date: 20071228
  Transmission Date: 20080703
  Serious: Yes (Disabling)
  Sender: FDA-Public Use
  Company Number: US-BOEHRINGER INGELHEIM PHARMACEUTICALS, INC.-2007-BP-23759BP

PATIENT
  Age: 67 Year
  Sex: Male
  Weight: 89 kg

DRUGS (10)
  1. MIRAPEX [Suspect]
     Indication: RESTLESS LEGS SYNDROME
     Route: 048
     Dates: start: 20070820, end: 20071029
  2. PANTOPRAZOLE SODIUM [Concomitant]
  3. FORMOTEROL FUMERATE [Concomitant]
  4. AZELASTINE HCL [Concomitant]
  5. REGLAN [Concomitant]
  6. MOMETASONE FUROATE [Concomitant]
  7. MOMETASONE FUROATE [Concomitant]
  8. NAPHAZOLINE HCL [Concomitant]
  9. ALBUTEROL [Concomitant]
  10. LIPITOR [Concomitant]

REACTIONS (5)
  - DEAFNESS [None]
  - EAR INFECTION [None]
  - HEARING IMPAIRED [None]
  - HYPOACUSIS [None]
  - NERVE INJURY [None]
